FAERS Safety Report 13584422 (Version 2)
Quarter: 2017Q2

REPORT INFORMATION
  Report Type: Report from Study
  Country: None (occurrence: DE)
  Receive Date: 20170526
  Receipt Date: 20170530
  Transmission Date: 20170830
  Serious: Yes (Hospitalization)
  Sender: FDA-Public Use
  Company Number: DE-ABBVIE-17K-062-1987311-00

PATIENT
  Sex: Male

DRUGS (1)
  1. HUMIRA [Suspect]
     Active Substance: ADALIMUMAB
     Indication: PSORIATIC ARTHROPATHY
     Route: 058
     Dates: start: 2011

REACTIONS (5)
  - Cystitis [Unknown]
  - Chills [Not Recovered/Not Resolved]
  - Gastritis [Unknown]
  - Arthralgia [Not Recovered/Not Resolved]
  - Oesophagitis [Unknown]

NARRATIVE: CASE EVENT DATE: 2017
